FAERS Safety Report 13739060 (Version 1)
Quarter: 2017Q3

REPORT INFORMATION
  Report Type: Spontaneous
  Country: US (occurrence: US)
  Receive Date: 20170710
  Receipt Date: 20170710
  Transmission Date: 20171127
  Serious: Yes (Hospitalization)
  Sender: FDA-Public Use
  Company Number: US-SAOL THERAPEUTICS-2017SAO00784

PATIENT
  Age: 45 Year
  Sex: Female

DRUGS (3)
  1. BACLOFEN. [Suspect]
     Active Substance: BACLOFEN
     Dosage: 488.24 ?G, \DAY
     Dates: end: 20170421
  2. LIORESAL [Suspect]
     Active Substance: BACLOFEN
     Dosage: 400 ?G, \DAY
  3. LIORESAL [Suspect]
     Active Substance: BACLOFEN
     Dosage: 487.9 ?G, \DAY

REACTIONS (4)
  - Drug withdrawal syndrome [Recovered/Resolved]
  - Dizziness [Recovered/Resolved]
  - Device damage [Recovered/Resolved]
  - Nausea [Recovered/Resolved]

NARRATIVE: CASE EVENT DATE: 20170421
